FAERS Safety Report 6165286-4 (Version None)
Quarter: 2009Q2

REPORT INFORMATION
  Report Type: 
  Country: None (occurrence: None)
  Receive Date: 20090423
  Receipt Date: 20090415
  Transmission Date: 20091009
  Serious: Yes (Hospitalization)
  Sender: FDA-Public Use
  Company Number: B0569992A

PATIENT
  Sex: Male

DRUGS (1)
  1. SERETIDE [Suspect]
     Indication: ASTHMA
     Route: 055

REACTIONS (5)
  - AGITATION [None]
  - HYPERTENSION [None]
  - HYPOKALAEMIA [None]
  - OVERDOSE [None]
  - TACHYCARDIA [None]
